FAERS Safety Report 7934412-6 (Version None)
Quarter: 2011Q4

REPORT INFORMATION
  Report Type: 
  Country: None (occurrence: None)
  Receive Date: 20111122
  Receipt Date: 20111114
  Transmission Date: 20120403
  Serious: Yes (Congenital Anomaly)
  Sender: FDA-Public Use
  Company Number: US-GLAXOSMITHKLINE-A0949404A

PATIENT
  Sex: Female

DRUGS (1)
  1. PAXIL [Suspect]
     Indication: PRODUCT USED FOR UNKNOWN INDICATION
     Route: 064
     Dates: start: 19910101

REACTIONS (5)
  - SPINA BIFIDA [None]
  - FOETAL EXPOSURE DURING PREGNANCY [None]
  - CARDIAC DISORDER [None]
  - ATTENTION DEFICIT/HYPERACTIVITY DISORDER [None]
  - MENTAL RETARDATION [None]
